FAERS Safety Report 24130541 (Version 1)
Quarter: 2024Q3

REPORT INFORMATION
  Report Type: Report from Study
  Country: US (occurrence: None)
  Receive Date: 20240724
  Receipt Date: 20240724
  Transmission Date: 20241017
  Serious: Yes (Other)
  Sender: ASTRAZENECA
  Company Number: 2024A162576

PATIENT
  Sex: Female
  Weight: 102.5 kg

DRUGS (1)
  1. TRUQAP [Suspect]
     Active Substance: CAPIVASERTIB
     Indication: Breast cancer female
     Dosage: 200MG ORALLY TWICE DAILY FOR 4 DAYS ON THEN 3 DAYS OFF
     Route: 048
     Dates: start: 20240520

REACTIONS (3)
  - Haemolytic anaemia [Unknown]
  - Nausea [Unknown]
  - Vomiting [Unknown]
